FAERS Safety Report 10626239 (Version 2)
Quarter: 2014Q4

REPORT INFORMATION
  Report Type: Report from Study
  Country: US (occurrence: US)
  Receive Date: 20141204
  Receipt Date: 20141218
  Transmission Date: 20150529
  Serious: Yes (Other)
  Sender: FDA-Public Use
  Company Number: US-SA-2014SA164416

PATIENT
  Age: 35 Year
  Sex: Male

DRUGS (1)
  1. AUBAGIO [Suspect]
     Active Substance: TERIFLUNOMIDE
     Indication: MULTIPLE SCLEROSIS
     Route: 048
     Dates: start: 20141121

REACTIONS (4)
  - Walking aid user [Unknown]
  - Hypoaesthesia [Unknown]
  - Asthenia [Unknown]
  - Wheelchair user [Unknown]

NARRATIVE: CASE EVENT DATE: 2014
